FAERS Safety Report 8307041-2 (Version None)
Quarter: 2012Q2

REPORT INFORMATION
  Report Type: 
  Country: None (occurrence: None)
  Receive Date: 20120424
  Receipt Date: 20120417
  Transmission Date: 20120825
  Serious: Yes (Death, Hospitalization, Other)
  Sender: FDA-Public Use
  Company Number: PHHY2011JP28684

PATIENT
  Age: 56 Year
  Sex: Female

DRUGS (15)
  1. SUNITINIB MALATE [Concomitant]
     Dosage: 50 MG, UNK
     Route: 048
     Dates: start: 20100722, end: 20101216
  2. CONIEL [Concomitant]
     Dosage: 4 MG
     Route: 048
     Dates: start: 20101210, end: 20110221
  3. AFINITOR [Suspect]
     Dosage: 10 MG, QD
     Route: 048
     Dates: start: 20110331, end: 20110426
  4. SUNITINIB MALATE [Concomitant]
     Dosage: 37.5 MG, UNK
     Route: 048
  5. AFINITOR [Suspect]
     Indication: METASTATIC RENAL CELL CARCINOMA
     Dosage: 10 MG, DAILY
     Route: 048
     Dates: start: 20110107, end: 20110222
  6. METABANYL [Concomitant]
     Dosage: 6 MG, UNK
     Route: 048
     Dates: start: 20110222
  7. MUCODYNE [Concomitant]
     Dosage: 1500 MG, UNK
     Route: 048
     Dates: start: 20110304, end: 20110323
  8. ASTOMIN [Concomitant]
     Dosage: 30 MG
     Route: 048
     Dates: start: 20101022, end: 20110323
  9. PRAVASTATIN SODIUM [Concomitant]
     Indication: HYPERLIPIDAEMIA
     Dosage: 10 MG, UNK
     Route: 048
     Dates: start: 20110422, end: 20110624
  10. CODEINE PHOSPHATE [Concomitant]
     Dosage: 60 MG
     Route: 048
     Dates: start: 20110131, end: 20110221
  11. ASTOMIN [Concomitant]
     Dosage: 60 MG, UNK
     Route: 048
  12. AFINITOR [Suspect]
     Dosage: 10 MG, QD
     Route: 048
     Dates: start: 20110521, end: 20110626
  13. SUNITINIB MALATE [Concomitant]
     Dosage: 25 MG, UNK
  14. PHENOBARBITAL TAB [Concomitant]
     Dosage: 30 MG, UNK
     Route: 048
     Dates: start: 20110603, end: 20110718
  15. URSO 250 [Concomitant]
     Dosage: 300 MG, UNK
     Route: 048
     Dates: start: 20110302, end: 20110301

REACTIONS (6)
  - PULMONARY MYCOSIS [None]
  - HEPATIC FUNCTION ABNORMAL [None]
  - PNEUMONIA [None]
  - NEOPLASM PROGRESSION [None]
  - BLOOD LACTATE DEHYDROGENASE INCREASED [None]
  - NEOPLASM MALIGNANT [None]
